FAERS Safety Report 11288247 (Version 1)
Quarter: 2015Q3

REPORT INFORMATION
  Report Type: Spontaneous
  Country: None (occurrence: HN)
  Receive Date: 20150721
  Receipt Date: 20150721
  Transmission Date: 20151125
  Serious: Yes (Other)
  Sender: FDA-Public Use
  Company Number: HN-MERCK KGAA-1040628

PATIENT

DRUGS (1)
  1. NOVOTHYROX [Suspect]
     Active Substance: LEVOTHYROXINE SODIUM

REACTIONS (19)
  - Abdominal pain upper [None]
  - Constipation [None]
  - Insomnia [None]
  - Feeling abnormal [None]
  - Crying [None]
  - Feeling of body temperature change [None]
  - Anxiety [None]
  - Uterine leiomyoma [None]
  - Overweight [None]
  - Fatigue [None]
  - Feeling hot [None]
  - Rosacea [None]
  - Back pain [None]
  - Chest pain [None]
  - Arthralgia [None]
  - Drug intolerance [None]
  - Alopecia [None]
  - Amnesia [None]
  - Tachycardia [None]
